FAERS Safety Report 8573832-6 (Version None)
Quarter: 2012Q3

REPORT INFORMATION
  Report Type: 
  Country: None (occurrence: None)
  Receive Date: 20120806
  Receipt Date: 20110831
  Transmission Date: 20120928
  Serious: No
  Sender: FDA-Public Use
  Company Number: US-GLAXOSMITHKLINE-A0943014A

PATIENT
  Sex: Female

DRUGS (7)
  1. CARVEDILOL [Concomitant]
  2. VITAMIN B-12 [Concomitant]
  3. FLUTICASONE PROPIONATE [Suspect]
     Indication: ASTHMA
     Dosage: 2PUFF TWICE PER DAY
     Route: 055
     Dates: start: 20100101
  4. BENICAR [Concomitant]
  5. VITAMIN D [Concomitant]
  6. GABAPENTIN [Concomitant]
  7. FOLIC ACID [Concomitant]

REACTIONS (1)
  - WEIGHT INCREASED [None]
